FAERS Safety Report 25413181 (Version 1)
Quarter: 2025Q2

REPORT INFORMATION
  Report Type: Spontaneous
  Country: US (occurrence: US)
  Receive Date: 20250609
  Receipt Date: 20250609
  Transmission Date: 20250716
  Serious: Yes (Other)
  Sender: TEVA
  Company Number: US-TEVA-VS-3337791

PATIENT
  Age: 57 Year
  Sex: Female

DRUGS (2)
  1. METOCLOPRAMIDE [Suspect]
     Active Substance: METOCLOPRAMIDE
     Indication: Nausea
     Route: 048
  2. METOCLOPRAMIDE [Suspect]
     Active Substance: METOCLOPRAMIDE
     Indication: Nausea
     Route: 065

REACTIONS (7)
  - Appendicitis [Unknown]
  - Product prescribing issue [Unknown]
  - Gallbladder disorder [Unknown]
  - Pancreatic disorder [Unknown]
  - Abdominal distension [Unknown]
  - Product use issue [Unknown]
  - Abdominal pain [Unknown]
